FAERS Safety Report 8489361-4 (Version None)
Quarter: 2012Q3

REPORT INFORMATION
  Report Type: 
  Country: None (occurrence: None)
  Receive Date: 20120705
  Receipt Date: 20120625
  Transmission Date: 20120928
  Serious: Yes (Congenital Anomaly, Other)
  Sender: FDA-Public Use
  Company Number: DE-ASTRAZENECA-2012SE42605

PATIENT
  Age: 4 Day
  Sex: Female
  Weight: 4 kg

DRUGS (3)
  1. SEROQUEL [Suspect]
     Indication: DEPRESSION
     Route: 064
     Dates: start: 20100126, end: 20101029
  2. VENLAFAXINE [Suspect]
     Indication: DEPRESSION
     Route: 064
     Dates: start: 20100126, end: 20101029
  3. LITHIUM CARBONATE [Suspect]
     Indication: BIPOLAR DISORDER
     Route: 064
     Dates: start: 20100126, end: 20101029

REACTIONS (3)
  - AGITATION NEONATAL [None]
  - RESPIRATORY FAILURE [None]
  - ATRIAL SEPTAL DEFECT [None]
